FAERS Safety Report 13256490 (Version 2)
Quarter: 2017Q4

REPORT INFORMATION
  Report Type: Spontaneous
  Country: US (occurrence: US)
  Receive Date: 20170221
  Receipt Date: 20171128
  Transmission Date: 20180320
  Serious: Yes (Death)
  Sender: FDA-Public Use
  Company Number: US-FERRINGPH-2017FE00612

PATIENT

DRUGS (1)
  1. CERVIDIL [Suspect]
     Active Substance: DINOPROSTONE
     Indication: PRODUCT USED FOR UNKNOWN INDICATION
     Dosage: UNK
     Route: 065
     Dates: start: 20170206, end: 20170206

REACTIONS (4)
  - Haemoptysis [Fatal]
  - Cardiac arrest [Fatal]
  - Asthma [Fatal]
  - Product use issue [Unknown]

NARRATIVE: CASE EVENT DATE: 20170206
